FAERS Safety Report 8384059-5 (Version None)
Quarter: 2012Q2

REPORT INFORMATION
  Report Type: 
  Country: None (occurrence: None)
  Receive Date: 20120524
  Receipt Date: 20120516
  Transmission Date: 20120825
  Serious: Yes (Hospitalization)
  Sender: FDA-Public Use
  Company Number: PHHY2012NL042696

PATIENT
  Sex: Female

DRUGS (1)
  1. DICLOFENAC POTASSIUM [Suspect]
     Indication: BACK PAIN
     Dosage: 12.5 MG, TID
     Route: 048
     Dates: start: 20120101, end: 20120201

REACTIONS (3)
  - PANCYTOPENIA [None]
  - RENAL IMPAIRMENT [None]
  - LIVER DISORDER [None]
